FAERS Safety Report 6878770-2 (Version None)
Quarter: 2010Q3

REPORT INFORMATION
  Report Type: 
  Country: None (occurrence: None)
  Receive Date: 20100728
  Receipt Date: 20081201
  Transmission Date: 20110219
  Serious: No
  Sender: FDA-Public Use
  Company Number: US-PFIZER INC-2008150633

PATIENT
  Sex: Male
  Weight: 77.55 kg

DRUGS (1)
  1. CHANTIX [Suspect]
     Indication: SMOKING CESSATION THERAPY
     Dosage: 0.5 MG, 1X/DAY
     Dates: start: 20060101, end: 20060101

REACTIONS (5)
  - AGITATION [None]
  - DRUG INEFFECTIVE [None]
  - NAUSEA [None]
  - NERVOUSNESS [None]
  - POOR QUALITY SLEEP [None]
